FAERS Safety Report 25519830 (Version 1)
Quarter: 2025Q3

REPORT INFORMATION
  Report Type: Spontaneous
  Country: TW (occurrence: TW)
  Receive Date: 20250704
  Receipt Date: 20250704
  Transmission Date: 20251020
  Serious: Yes (Other)
  Sender: ROCHE
  Company Number: TW-ROCHE-10000321079

PATIENT
  Age: 47 Year
  Sex: Male

DRUGS (2)
  1. ATEZOLIZUMAB [Suspect]
     Active Substance: ATEZOLIZUMAB
     Indication: Hepatocellular carcinoma
     Dosage: UNKNOWN DOSE
     Route: 065
  2. BEVACIZUMAB [Suspect]
     Active Substance: BEVACIZUMAB
     Indication: Hepatocellular carcinoma
     Dosage: UNKNOWN DOSE
     Route: 065

REACTIONS (3)
  - Gastric ulcer [Unknown]
  - Duodenal neoplasm [Unknown]
  - Small intestinal perforation [Unknown]
